FAERS Safety Report 6736672-6 (Version None)
Quarter: 2010Q2

REPORT INFORMATION
  Report Type: 
  Country: None (occurrence: None)
  Receive Date: 20100521
  Receipt Date: 20100510
  Transmission Date: 20101027
  Serious: Yes (Other)
  Sender: FDA-Public Use
  Company Number: PHHY2010GB31472

PATIENT
  Age: 6 Year
  Sex: Female

DRUGS (1)
  1. PAMIDRONATE DISODIUM [Suspect]
     Dosage: UNK

REACTIONS (7)
  - BONE PAIN [None]
  - CONCOMITANT DISEASE PROGRESSION [None]
  - COSTOCHONDRITIS [None]
  - CYTOKINE STORM [None]
  - DERMATITIS PSORIASIFORM [None]
  - DRUG INEFFECTIVE [None]
  - OSTEOMYELITIS [None]
